FAERS Safety Report 6928537-1 (Version None)
Quarter: 2010Q3

REPORT INFORMATION
  Report Type: 
  Country: None (occurrence: None)
  Receive Date: 20100817
  Receipt Date: 20100807
  Transmission Date: 20110219
  Serious: Yes (Death, Hospitalization)
  Sender: FDA-Public Use
  Company Number: DE-ABBOTT-10P-062-0621586-00

PATIENT
  Sex: Male
  Weight: 100 kg

DRUGS (20)
  1. HUMIRA [Suspect]
     Indication: RHEUMATOID ARTHRITIS
     Dosage: CUMULATED DOSE UNTIL DEC08:320MG
     Dates: start: 20080801, end: 20081201
  2. ENBREL [Concomitant]
     Indication: PRODUCT USED FOR UNKNOWN INDICATION
     Dates: start: 20041101, end: 20060601
  3. ENBREL [Concomitant]
     Dates: start: 20060701, end: 20080701
  4. ENBREL [Concomitant]
     Dosage: WEEKLY ON MONDAYS:  CUMULATED DOSE UNTIL MAY 2009: 1200MG
     Route: 058
     Dates: start: 20081101
  5. MTX [Concomitant]
     Indication: PRODUCT USED FOR UNKNOWN INDICATION
     Dates: start: 20030501, end: 20080801
  6. MTX [Concomitant]
     Route: 058
     Dates: start: 20081201, end: 20090501
  7. HYDROCHLOROQUIN [Concomitant]
     Indication: PRODUCT USED FOR UNKNOWN INDICATION
     Dates: start: 20040401, end: 20090901
  8. MELPHALAN [Concomitant]
     Indication: PRODUCT USED FOR UNKNOWN INDICATION
  9. PREDNISOLONE [Concomitant]
     Indication: PRODUCT USED FOR UNKNOWN INDICATION
  10. CALCIUM/COLECALCIFEROL 500MG/400IE [Concomitant]
     Indication: PRODUCT USED FOR UNKNOWN INDICATION
  11. PANTOPRAZOLE SODIUM [Concomitant]
     Indication: PRODUCT USED FOR UNKNOWN INDICATION
  12. RAMIPRIL [Concomitant]
     Indication: PRODUCT USED FOR UNKNOWN INDICATION
  13. HCT [Concomitant]
     Indication: PRODUCT USED FOR UNKNOWN INDICATION
  14. ETORICOXIB [Concomitant]
     Indication: PRODUCT USED FOR UNKNOWN INDICATION
  15. METAMIZOL [Concomitant]
     Indication: PRODUCT USED FOR UNKNOWN INDICATION
  16. AMITRYPTILIN [Concomitant]
     Indication: PRODUCT USED FOR UNKNOWN INDICATION
  17. DURAGESIC-100 [Concomitant]
     Indication: PRODUCT USED FOR UNKNOWN INDICATION
     Route: 062
  18. MACROGOL [Concomitant]
     Indication: PRODUCT USED FOR UNKNOWN INDICATION
     Dosage: ONE BAG
  19. IRENAT [Concomitant]
     Indication: PRODUCT USED FOR UNKNOWN INDICATION
  20. CLEXANE [Concomitant]
     Indication: PRODUCT USED FOR UNKNOWN INDICATION
     Route: 058

REACTIONS (19)
  - ARTHRALGIA [None]
  - BACK PAIN [None]
  - DYSPNOEA [None]
  - ENCHONDROMA [None]
  - GENERAL PHYSICAL HEALTH DETERIORATION [None]
  - HAEMATOMA [None]
  - MOBILITY DECREASED [None]
  - MUSCLE ATROPHY [None]
  - MUSCULOSKELETAL STIFFNESS [None]
  - PAIN [None]
  - PAIN IN EXTREMITY [None]
  - PELVIC FRACTURE [None]
  - PELVIC PAIN [None]
  - PLASMACYTOMA [None]
  - PURPURA [None]
  - SEROLOGY ABNORMAL [None]
  - SPINAL OSTEOARTHRITIS [None]
  - STRESS FRACTURE [None]
  - VARICOSE VEIN [None]
